FAERS Safety Report 6074323-7 (Version None)
Quarter: 2009Q1

REPORT INFORMATION
  Report Type: 
  Country: None (occurrence: None)
  Receive Date: 20090211
  Receipt Date: 20090210
  Transmission Date: 20090719
  Serious: No
  Sender: FDA-Public Use
  Company Number: US-B.I. PHARMACEUTICALS,INC./RIDGEFIELD-2009-BP-01678BP

PATIENT
  Age: 79 Year
  Sex: Male

DRUGS (4)
  1. FLOMAX [Suspect]
     Indication: POLLAKIURIA
     Dosage: .4MG
     Route: 048
     Dates: start: 20090206
  2. FLOMAX [Suspect]
     Indication: BENIGN PROSTATIC HYPERPLASIA
  3. AVODART [Concomitant]
  4. CARDURA [Concomitant]

REACTIONS (1)
  - DRUG INEFFECTIVE [None]
